FAERS Safety Report 10534706 (Version 2)
Quarter: 2014Q4

REPORT INFORMATION
  Report Type: Spontaneous
  Country: US (occurrence: US)
  Receive Date: 20141022
  Receipt Date: 20141022
  Transmission Date: 20150529
  Serious: Yes (Hospitalization, Other)
  Sender: FDA-Public Use
  Company Number: US-GLAXOSMITHKLINE-A0729679A

PATIENT
  Age: 59 Year
  Sex: Male

DRUGS (10)
  1. COREG [Concomitant]
     Active Substance: CARVEDILOL
     Dates: start: 200602, end: 200708
  2. LAMISIL [Concomitant]
     Active Substance: TERBINAFINE HYDROCHLORIDE
  3. GLUCOPHAGE [Concomitant]
     Active Substance: METFORMIN HYDROCHLORIDE
     Dates: start: 1999, end: 2002
  4. HYDROCHLOROTHIAZIDE. [Concomitant]
     Active Substance: HYDROCHLOROTHIAZIDE
     Dates: start: 2005
  5. AVANDIA [Suspect]
     Active Substance: ROSIGLITAZONE MALEATE
     Indication: TYPE 2 DIABETES MELLITUS
     Route: 048
     Dates: start: 200010, end: 200602
  6. LIPITOR [Concomitant]
     Active Substance: ATORVASTATIN CALCIUM
  7. NOVOLOG [Concomitant]
     Active Substance: INSULIN ASPART
  8. CLARINEX [Concomitant]
     Active Substance: DESLORATADINE
  9. DIOVAN [Concomitant]
     Active Substance: VALSARTAN
  10. LASIX [Concomitant]
     Active Substance: FUROSEMIDE

REACTIONS (4)
  - Cardiac failure congestive [Not Recovered/Not Resolved]
  - Coronary artery disease [Unknown]
  - Cardiomyopathy [Unknown]
  - Pulmonary hypertension [Unknown]

NARRATIVE: CASE EVENT DATE: 20060214
